FAERS Safety Report 6865301-6 (Version None)
Quarter: 2010Q3

REPORT INFORMATION
  Report Type: 
  Country: None (occurrence: None)
  Receive Date: 20100721
  Receipt Date: 20080414
  Transmission Date: 20110219
  Serious: No
  Sender: FDA-Public Use
  Company Number: US-PFIZER INC-2008035007

PATIENT
  Sex: Male
  Weight: 54.5 kg

DRUGS (1)
  1. CHANTIX [Suspect]
     Indication: SMOKING CESSATION THERAPY
     Route: 048
     Dates: start: 20080410, end: 20080414

REACTIONS (9)
  - ABASIA [None]
  - ABNORMAL DREAMS [None]
  - BEDRIDDEN [None]
  - DIARRHOEA [None]
  - DIZZINESS [None]
  - IMPAIRED WORK ABILITY [None]
  - MALAISE [None]
  - NAUSEA [None]
  - VOMITING [None]
